FAERS Safety Report 8793773 (Version 2)
Quarter: 2013Q1

REPORT INFORMATION
  Report Type: Spontaneous
  Country: BR (occurrence: BR)
  Receive Date: 20120917
  Receipt Date: 20130115
  Transmission Date: 20140127
  Serious: Yes (Death, Other)
  Sender: FDA-Public Use
  Company Number: PHHY2012BR080545

PATIENT
  Sex: Male

DRUGS (5)
  1. FORASEQ [Suspect]
     Indication: BRONCHITIS
     Dosage: 2 DF, QD
  2. INSULIN [Concomitant]
     Indication: DIABETES MELLITUS
     Dosage: 2 DF, DAILY
     Dates: start: 201207
  3. ENALAPRIL [Concomitant]
     Indication: HYPERTENSION
     Dosage: 20 MG, DAILY
     Route: 048
  4. SIMVASTATIN [Concomitant]
     Indication: BLOOD CHOLESTEROL INCREASED
     Dosage: 20 MG, DAILY
  5. AAS [Concomitant]
     Dosage: 10 MG,DAILY
     Route: 048

REACTIONS (4)
  - Dementia Alzheimer^s type [Fatal]
  - Memory impairment [Fatal]
  - Respiratory arrest [Fatal]
  - Skin discolouration [Not Recovered/Not Resolved]
